FAERS Safety Report 12982084 (Version 2)
Quarter: 2025Q2

REPORT INFORMATION
  Report Type: Report from Study
  Country: US (occurrence: US)
  Receive Date: 20161129
  Receipt Date: 20250619
  Transmission Date: 20250717
  Serious: No
  Sender: TAKEDA
  Company Number: US-TAKEDA-2016MPI009972

PATIENT
  Age: 60 Year
  Sex: Male
  Weight: 79.819 kg

DRUGS (9)
  1. IXAZOMIB [Suspect]
     Active Substance: IXAZOMIB
     Indication: Plasma cell myeloma
     Dosage: 4 MILLIGRAM, 1/WEEK
     Dates: start: 20161110
  2. DEXAMETHASONE [Suspect]
     Active Substance: DEXAMETHASONE
     Indication: Plasma cell myeloma
     Dosage: 20 MILLIGRAM, 1/WEEK
     Dates: start: 20161110
  3. REVLIMID [Suspect]
     Active Substance: LENALIDOMIDE
     Indication: Plasma cell myeloma
  4. LISINOPRIL [Concomitant]
     Active Substance: LISINOPRIL
  5. ACYCLOVIR [Concomitant]
     Active Substance: ACYCLOVIR
  6. METHADONE [Concomitant]
     Active Substance: METHADONE HYDROCHLORIDE
  7. FENTANYL [Concomitant]
     Active Substance: FENTANYL
  8. GABAPENTIN [Concomitant]
     Active Substance: GABAPENTIN
  9. KLOR-CON M10 [Concomitant]
     Active Substance: POTASSIUM CHLORIDE

REACTIONS (3)
  - Influenza [Recovered/Resolved]
  - Product dose omission issue [Unknown]
  - Product packaging quantity issue [Unknown]

NARRATIVE: CASE EVENT DATE: 20161117
